FAERS Safety Report 7484686-3 (Version None)
Quarter: 2011Q2

REPORT INFORMATION
  Report Type: 
  Country: None (occurrence: None)
  Receive Date: 20110517
  Receipt Date: 20101206
  Transmission Date: 20111010
  Serious: Yes (Other)
  Sender: FDA-Public Use
  Company Number: US-BAYER-2010-004301

PATIENT
  Age: 31 Year
  Sex: Female

DRUGS (1)
  1. MIRENA [Suspect]
     Indication: CONTRACEPTION
     Dosage: UNK
     Route: 015
     Dates: end: 20100801

REACTIONS (13)
  - HOT FLUSH [None]
  - HYPERHIDROSIS [None]
  - TREMOR [None]
  - HEADACHE [None]
  - ABDOMINAL PAIN [None]
  - ECTOPIC PREGNANCY [None]
  - DEPRESSION [None]
  - NAUSEA [None]
  - DYSPNOEA [None]
  - ANXIETY [None]
  - ONYCHOMYCOSIS [None]
  - BACK PAIN [None]
  - PALPITATIONS [None]
